FAERS Safety Report 18637654 (Version 1)
Quarter: 2020Q4

REPORT INFORMATION
  Report Type: Spontaneous
  Country: US (occurrence: US)
  Receive Date: 20201218
  Receipt Date: 20201218
  Transmission Date: 20210114
  Serious: No
  Sender: FDA-Public Use
  Company Number: US-GENUS_LIFESCIENCES-USA-POI0580202000193

PATIENT
  Age: 68 Year
  Sex: Male

DRUGS (1)
  1. OXYCODONE HCL ORAL SOLUTION [Suspect]
     Active Substance: OXYCODONE HYDROCHLORIDE
     Indication: THROAT CANCER
     Route: 048
     Dates: start: 201907

REACTIONS (1)
  - Throat irritation [Not Recovered/Not Resolved]

NARRATIVE: CASE EVENT DATE: 201907
